FAERS Safety Report 25850225 (Version 1)
Quarter: 2025Q3

REPORT INFORMATION
  Report Type: Report from Study
  Country: CA (occurrence: CA)
  Receive Date: 20250926
  Receipt Date: 20250926
  Transmission Date: 20251021
  Serious: Yes (Other)
  Sender: CELLTRION
  Company Number: CA-CELLTRION INC.-2025CA034170

PATIENT

DRUGS (12)
  1. RITUXIMAB [Suspect]
     Active Substance: RITUXIMAB
     Indication: Anti-neutrophil cytoplasmic antibody positive vasculitis
     Route: 042
  2. ACRIVASTINE [Concomitant]
     Active Substance: ACRIVASTINE
     Route: 048
  3. AZATHIOPRINE [Concomitant]
     Active Substance: AZATHIOPRINE
     Route: 048
  4. CHOLECALCIFEROL [Concomitant]
     Active Substance: CHOLECALCIFEROL
     Route: 048
  5. DAPSONE [Concomitant]
     Active Substance: DAPSONE
  6. FOLIC ACID [Concomitant]
     Active Substance: FOLIC ACID
  7. METHOTREXATE [Concomitant]
     Active Substance: METHOTREXATE
  8. METHYLPREDNISOLONE SODIUM SUCCINATE [Concomitant]
     Active Substance: METHYLPREDNISOLONE SODIUM SUCCINATE
     Route: 042
  9. PANTOPRAZOLE [Concomitant]
     Active Substance: PANTOPRAZOLE
     Route: 048
  10. PREDNISONE [Concomitant]
     Active Substance: PREDNISONE
  11. ALBUTEROL [Concomitant]
     Active Substance: ALBUTEROL
     Indication: Cough
  12. TYLENOL [Concomitant]
     Active Substance: ACETAMINOPHEN
     Route: 048

REACTIONS (4)
  - Osteoarthritis [Unknown]
  - Pneumonia [Unknown]
  - Overdose [Unknown]
  - Intentional product use issue [Unknown]
